FAERS Safety Report 6095156-1 (Version None)
Quarter: 2009Q1

REPORT INFORMATION
  Report Type: 
  Country: None (occurrence: None)
  Receive Date: 20090227
  Receipt Date: 20080131
  Transmission Date: 20090719
  Serious: No
  Sender: FDA-Public Use
  Company Number: A0706666A

PATIENT
  Age: 62 Year
  Sex: Female

DRUGS (6)
  1. LAMICTAL [Suspect]
     Dosage: 150MG TWICE PER DAY
     Route: 048
     Dates: start: 20070201
  2. LIPITOR [Concomitant]
  3. CALCIUM [Concomitant]
  4. ATENOLOL [Concomitant]
  5. MELATONIN [Concomitant]
  6. LORAZEPAM [Concomitant]

REACTIONS (2)
  - AMNESIA [None]
  - MOOD SWINGS [None]
